FAERS Safety Report 10250447 (Version 1)
Quarter: 2014Q2

REPORT INFORMATION
  Report Type: Spontaneous
  Country: US (occurrence: None)
  Receive Date: 20140618
  Receipt Date: 20140618
  Transmission Date: 20141212
  Serious: No
  Sender: FDA-Public Use
  Company Number: None

PATIENT
  Age: 70 Year
  Sex: Female
  Weight: 96.16 kg

DRUGS (1)
  1. DULOXETINE HCI. DR 60 MG [Suspect]
     Indication: DEPRESSION
     Dosage: ONE DAILY, ONCE DAILY, TAKEN BY MOUTH
     Route: 048
     Dates: start: 20140525, end: 20140613

REACTIONS (8)
  - Hot flush [None]
  - Fear [None]
  - Depression [None]
  - Anxiety [None]
  - Decreased appetite [None]
  - Disturbance in attention [None]
  - Product substitution issue [None]
  - Burning sensation [None]
